FAERS Safety Report 6188784-6 (Version None)
Quarter: 2009Q2

REPORT INFORMATION
  Report Type: 
  Country: None (occurrence: None)
  Receive Date: 20090511
  Receipt Date: 20090511
  Transmission Date: 20091009
  Serious: Yes (Other)
  Sender: FDA-Public Use
  Company Number: None

PATIENT
  Age: 24 Year
  Sex: Female
  Weight: 111.1313 kg

DRUGS (1)
  1. MIRENA [Suspect]
     Indication: CONTRACEPTION
     Dates: start: 20081002, end: 20090206

REACTIONS (7)
  - BACK PAIN [None]
  - FUNGAL INFECTION [None]
  - IUCD COMPLICATION [None]
  - MOOD SWINGS [None]
  - MUSCLE SPASMS [None]
  - PAIN [None]
  - VAGINAL HAEMORRHAGE [None]
